FAERS Safety Report 6071672-3 (Version None)
Quarter: 2009Q1

REPORT INFORMATION
  Report Type: 
  Country: None (occurrence: None)
  Receive Date: 20090205
  Receipt Date: 20090127
  Transmission Date: 20090719
  Serious: Yes (Hospitalization)
  Sender: FDA-Public Use
  Company Number: 2008SP025025

PATIENT
  Age: 37 Year
  Sex: Male
  Weight: 84 kg

DRUGS (7)
  1. TEMODAL [Suspect]
     Indication: GLIOBLASTOMA
     Dosage: 75 MG/M2; QD; PO
     Route: 048
     Dates: start: 20081204, end: 20081209
  2. TEMODAL [Suspect]
     Indication: GLIOBLASTOMA
     Dosage: 75 MG/M2; QD; PO
     Route: 048
     Dates: start: 20090112
  3. DEXAMETHASONE TAB [Suspect]
     Indication: BRAIN OEDEMA
     Dosage: 12 MG; QD; PO; 2 MG; TID; 2 MG; QD
     Route: 048
     Dates: start: 20081112, end: 20081125
  4. DEXAMETHASONE TAB [Suspect]
     Indication: BRAIN OEDEMA
     Dosage: 12 MG; QD; PO; 2 MG; TID; 2 MG; QD
     Route: 048
     Dates: start: 20090112
  5. VALPROATE SODIUM [Concomitant]
  6. OMEPRAZOLE [Concomitant]
  7. METOCLOPRAMIDE [Concomitant]

REACTIONS (3)
  - BLOOD LACTATE DEHYDROGENASE INCREASED [None]
  - BONE INFARCTION [None]
  - LIPIDS ABNORMAL [None]
